FAERS Safety Report 4408097-X (Version None)
Quarter: 2004Q3

REPORT INFORMATION
  Report Type: 
  Country: None (occurrence: None)
  Receive Date: 20040722
  Receipt Date: 20040709
  Transmission Date: 20050211
  Serious: Yes (Life-Threatening, Hospitalization)
  Sender: FDA-Public Use
  Company Number: 2004-BP-04138NB(3)

PATIENT
  Age: 87 Year
  Sex: Male

DRUGS (5)
  1. MICARDIS [Suspect]
     Indication: HYPERTENSION
     Dosage: 40 MG (NR) PO
     Route: 048
     Dates: start: 20030409, end: 20040514
  2. PARIET (RABEPRAZOLE SODIUM) (TA) [Concomitant]
  3. LUPRAC (TORASEMIDE) (TA) [Concomitant]
  4. WARFARIN (WARFARIN) (TA) [Concomitant]
  5. PAXIL (PAROXETINE HYDROCHLORIE) (TA) [Concomitant]

REACTIONS (6)
  - ANOREXIA [None]
  - CONDITION AGGRAVATED [None]
  - DIALYSIS [None]
  - DRUG INEFFECTIVE [None]
  - LOSS OF CONSCIOUSNESS [None]
  - RENAL FAILURE CHRONIC [None]
